FAERS Safety Report 5213188-X (Version None)
Quarter: 2007Q1

REPORT INFORMATION
  Report Type: 
  Country: None (occurrence: None)
  Receive Date: 20070119
  Receipt Date: 20070108
  Transmission Date: 20070707
  Serious: Yes (Hospitalization)
  Sender: FDA-Public Use
  Company Number: FR-GLAXOSMITHKLINE-B0453368A

PATIENT
  Age: 62 Year
  Sex: Female
  Weight: 66 kg

DRUGS (4)
  1. PAROXETINE HCL [Suspect]
     Indication: DRUG USE FOR UNKNOWN INDICATION
     Dosage: 20MG PER DAY
     Route: 048
  2. LIVIAL [Suspect]
     Route: 048
     Dates: start: 19930101, end: 20010101
  3. ZOPICLONE [Suspect]
     Route: 048
     Dates: start: 20020101
  4. ALPRAZOLAM [Suspect]
     Dosage: 1UNIT PER DAY
     Route: 048
     Dates: start: 20020101

REACTIONS (1)
  - CEREBRAL VENOUS THROMBOSIS [None]
